FAERS Safety Report 4374733-X (Version None)
Quarter: 2004Q2

REPORT INFORMATION
  Report Type: 
  Country: None (occurrence: None)
  Receive Date: 20040604
  Receipt Date: 20040525
  Transmission Date: 20050107
  Serious: Yes (Hospitalization)
  Sender: FDA-Public Use
  Company Number: 2003185908FR

PATIENT
  Age: 12 Year
  Sex: Female

DRUGS (1)
  1. GENOTROPIN [Suspect]
     Indication: HYPOPITUITARISM
     Dosage: 0.9 MG, QD, SUBCUTANEOUS
     Route: 058
     Dates: start: 20031023, end: 20031027

REACTIONS (3)
  - HEADACHE [None]
  - SHUNT MALFUNCTION [None]
  - VOMITING [None]
